FAERS Safety Report 18218560 (Version 2)
Quarter: 2020Q3

REPORT INFORMATION
  Report Type: Spontaneous
  Country: IT (occurrence: IT)
  Receive Date: 20200901
  Receipt Date: 20200928
  Transmission Date: 20201103
  Serious: Yes (Other)
  Sender: FDA-Public Use
  Company Number: IT-TEVA-2020-IT-1821480

PATIENT
  Sex: Female

DRUGS (10)
  1. TAMOXIFEN [Suspect]
     Active Substance: TAMOXIFEN
     Indication: INVASIVE LOBULAR BREAST CARCINOMA
  2. TRIPTORELIN [Suspect]
     Active Substance: TRIPTORELIN
     Indication: INVASIVE LOBULAR BREAST CARCINOMA
  3. TAMOXIFEN [Suspect]
     Active Substance: TAMOXIFEN
     Indication: BREAST CANCER METASTATIC
     Dosage: FIRST LINE TREATMENT
     Route: 065
  4. PALBOCICLIB [Suspect]
     Active Substance: PALBOCICLIB
     Indication: INVASIVE LOBULAR BREAST CARCINOMA
     Dosage: SECOND LINE TREATMENT
     Route: 065
  5. FULVESTRANT. [Suspect]
     Active Substance: FULVESTRANT
     Indication: INVASIVE LOBULAR BREAST CARCINOMA
  6. TRIPTORELIN [Suspect]
     Active Substance: TRIPTORELIN
     Indication: BREAST CANCER METASTATIC
     Dosage: FIRST LINE TREATMENT
     Route: 065
  7. TRIPTORELIN [Suspect]
     Active Substance: TRIPTORELIN
     Indication: HORMONE THERAPY
  8. TAMOXIFEN [Suspect]
     Active Substance: TAMOXIFEN
     Indication: HORMONE THERAPY
  9. PALBOCICLIB [Suspect]
     Active Substance: PALBOCICLIB
     Indication: BREAST CANCER METASTATIC
     Dosage: SECOND LINE TREATMENT
     Route: 065
  10. FULVESTRANT. [Suspect]
     Active Substance: FULVESTRANT
     Indication: BREAST CANCER METASTATIC
     Dosage: SECOND LINE TREATMENT
     Route: 065

REACTIONS (3)
  - Drug ineffective [Unknown]
  - Multiple-drug resistance [Unknown]
  - Myelosuppression [Unknown]
